FAERS Safety Report 11108789 (Version 1)
Quarter: 2015Q2

REPORT INFORMATION
  Report Type: Spontaneous
  Country: US (occurrence: None)
  Receive Date: 20150511
  Receipt Date: 20150511
  Transmission Date: 20150821
  Serious: Yes (Life-Threatening, Hospitalization, Disabling)
  Sender: FDA-Public Use
  Company Number: None

PATIENT
  Age: 54 Year
  Sex: Female
  Weight: 69.4 kg

DRUGS (4)
  1. MORPHINE [Concomitant]
     Active Substance: MORPHINE
  2. WARFARIN [Concomitant]
     Active Substance: WARFARIN
  3. PREDNISONE. [Suspect]
     Active Substance: PREDNISONE
     Indication: HEADACHE
     Dates: start: 20140108, end: 20140910
  4. SUPPORT STOCKINGS TO PREVENT CLOTS IN LEGS [Concomitant]

REACTIONS (3)
  - Thrombosis [None]
  - Nerve injury [None]
  - Pulmonary thrombosis [None]

NARRATIVE: CASE EVENT DATE: 20140417
